FAERS Safety Report 7921867-6 (Version None)
Quarter: 2011Q4

REPORT INFORMATION
  Report Type: 
  Country: None (occurrence: None)
  Receive Date: 20111117
  Receipt Date: 20111111
  Transmission Date: 20120403
  Serious: Yes (Other)
  Sender: FDA-Public Use
  Company Number: CHPA2011US016042

PATIENT
  Age: 64 Year
  Sex: Female

DRUGS (1)
  1. PREVACID 24 HR [Suspect]
     Indication: NAUSEA
     Dosage: 30 MG, QD
     Route: 048
     Dates: start: 20090101

REACTIONS (4)
  - INCORRECT DRUG ADMINISTRATION DURATION [None]
  - OVERDOSE [None]
  - OFF LABEL USE [None]
  - HIATUS HERNIA [None]
